FAERS Safety Report 6258954-7 (Version None)
Quarter: 2009Q3

REPORT INFORMATION
  Report Type: 
  Country: None (occurrence: None)
  Receive Date: 20090707
  Receipt Date: 20090626
  Transmission Date: 20100115
  Serious: Yes (Life-Threatening)
  Sender: FDA-Public Use
  Company Number: FR-GENENTECH-285994

PATIENT
  Sex: Male

DRUGS (10)
  1. RITUXIMAB [Suspect]
     Indication: BURKITT'S LYMPHOMA
     Dosage: 375 MG/M2, QD
     Route: 042
     Dates: start: 20060119, end: 20060119
  2. RITUXIMAB [Suspect]
     Dosage: 375 MG/M2, QD
     Route: 042
     Dates: start: 20060125, end: 20060125
  3. METHOTREXATE [Suspect]
     Indication: BURKITT'S LYMPHOMA
     Dosage: UNK
     Dates: start: 20060119
  4. METHOTREXATE [Suspect]
     Dosage: 3000 MG/M2, QD
     Dates: start: 20060701, end: 20060701
  5. CYCLOPHOSPHAMIDE [Concomitant]
     Indication: BURKITT'S LYMPHOMA
     Dosage: UNK
     Dates: start: 20060119
  6. VINCRISTINE [Concomitant]
     Indication: BURKITT'S LYMPHOMA
     Dosage: UNK
     Dates: start: 20060119
  7. PREDNISOLONE [Concomitant]
     Indication: BURKITT'S LYMPHOMA
     Dosage: UNK
     Dates: start: 20060119
  8. DOXORUBICIN HCL [Concomitant]
     Indication: BURKITT'S LYMPHOMA
     Dosage: UNK
     Dates: start: 20060119
  9. CYTARABINE [Concomitant]
     Indication: BURKITT'S LYMPHOMA
  10. ETOPOSIDE [Concomitant]
     Indication: BURKITT'S LYMPHOMA

REACTIONS (1)
  - LEUKOENCEPHALOPATHY [None]
